FAERS Safety Report 7351213-0 (Version None)
Quarter: 2011Q1

REPORT INFORMATION
  Report Type: 
  Country: None (occurrence: None)
  Receive Date: 20110314
  Receipt Date: 20110304
  Transmission Date: 20110831
  Serious: Yes (Hospitalization)
  Sender: FDA-Public Use
  Company Number: US-ASTRAZENECA-2011SE12153

PATIENT
  Age: 34 Year
  Sex: Female
  Weight: 96.6 kg

DRUGS (1)
  1. SEROQUEL [Suspect]
     Indication: NERVOUSNESS
     Route: 048

REACTIONS (5)
  - ARTERIOVENOUS MALFORMATION [None]
  - PNEUMONIA [None]
  - CEREBRAL CYST [None]
  - WEIGHT INCREASED [None]
  - MEMORY IMPAIRMENT [None]
